FAERS Safety Report 7772807-4 (Version None)
Quarter: 2011Q3

REPORT INFORMATION
  Report Type: 
  Country: None (occurrence: None)
  Receive Date: 20110922
  Receipt Date: 20110113
  Transmission Date: 20111222
  Serious: Yes (Other)
  Sender: FDA-Public Use
  Company Number: US-ASTRAZENECA-2008UW08602

PATIENT
  Age: 498 Month
  Sex: Female
  Weight: 113.4 kg

DRUGS (7)
  1. SEROQUEL [Suspect]
     Indication: BIPOLAR DISORDER
     Route: 048
     Dates: start: 20021017
  2. GEODON [Concomitant]
     Dates: start: 20070701
  3. LAMICTAL [Concomitant]
     Dates: start: 20051101
  4. TRAZODONE HYDROCHLORIDE [Concomitant]
  5. SEROQUEL [Suspect]
     Dosage: 100-300 MG
     Route: 048
     Dates: start: 20021001, end: 20070301
  6. PREDNISONE [Concomitant]
     Dates: start: 20030220
  7. DEPAKOTE ER [Concomitant]
     Dates: start: 20021017

REACTIONS (4)
  - TYPE 2 DIABETES MELLITUS [None]
  - ARTHRITIS [None]
  - WEIGHT INCREASED [None]
  - BLOOD CHOLESTEROL INCREASED [None]
